FAERS Safety Report 8138334-X (Version None)
Quarter: 2012Q1

REPORT INFORMATION
  Report Type: 
  Country: None (occurrence: None)
  Receive Date: 20120215
  Receipt Date: 20120213
  Transmission Date: 20120608
  Serious: Yes (Hospitalization)
  Sender: FDA-Public Use
  Company Number: US-PFIZER INC-2012038837

PATIENT
  Sex: Male
  Weight: 120.6 kg

DRUGS (5)
  1. COREG [Concomitant]
     Indication: CARDIOMYOPATHY
     Dosage: 25 MG, 2X/DAY
  2. SPIRONOLACTONE [Concomitant]
     Dosage: 25 MG, DAILY
  3. TIKOSYN [Suspect]
     Indication: ATRIAL FIBRILLATION
     Dosage: 250 UG, 2X/DAY
     Dates: start: 20110601
  4. LISINOPRIL [Concomitant]
     Indication: CARDIOMYOPATHY
     Dosage: 10 MG, DAILY
  5. COUMADIN [Concomitant]
     Indication: CARDIOMYOPATHY
     Dosage: 5 MG, DAILY

REACTIONS (1)
  - ATRIAL FIBRILLATION [None]
